FAERS Safety Report 11031967 (Version 2)
Quarter: 2015Q2

REPORT INFORMATION
  Report Type: Spontaneous
  Country: DE (occurrence: DE)
  Receive Date: 20150415
  Receipt Date: 20150501
  Transmission Date: 20150821
  Serious: Yes (Other)
  Sender: FDA-Public Use
  Company Number: DE-BAXTER-2015BAX019373

PATIENT
  Age: 61 Year
  Sex: Female
  Weight: 57 kg

DRUGS (14)
  1. ESMOLOL [Concomitant]
     Active Substance: ESMOLOL HYDROCHLORIDE
     Indication: PRODUCT USED FOR UNKNOWN INDICATION
     Dosage: DAILY
     Route: 065
  2. SIMVASTATIN. [Concomitant]
     Active Substance: SIMVASTATIN
     Indication: PRODUCT USED FOR UNKNOWN INDICATION
     Dosage: DAILY
     Route: 065
  3. PIRITRAMIDE [Concomitant]
     Active Substance: PIRITRAMIDE
     Indication: PROCEDURAL PAIN
     Route: 065
  4. REMIFENTANIL [Suspect]
     Active Substance: REMIFENTANIL
     Indication: MAINTENANCE OF ANAESTHESIA
     Dosage: 0.2 TO 0.4 MICROGRAM PER KILOGRAM PER MINUTE
     Route: 065
  5. PROPOFOL. [Suspect]
     Active Substance: PROPOFOL
     Indication: INDUCTION OF ANAESTHESIA
     Route: 065
  6. SUPRANE [Suspect]
     Active Substance: DESFLURANE
     Dosage: 5.8 TO 6.1 VOLUME PERCENT END TIDAL
     Route: 065
  7. REMIFENTANIL [Suspect]
     Active Substance: REMIFENTANIL
     Indication: INDUCTION OF ANAESTHESIA
     Dosage: 0.5 MICROGRAM PER KILOGRAM PER MINUTE
     Route: 065
  8. REMIFENTANIL [Suspect]
     Active Substance: REMIFENTANIL
     Dosage: 0.1 MICROGRAM PER KILOGRAM PER MINUTE
     Route: 065
  9. MAGNESIUM SULPHATE [Suspect]
     Active Substance: MAGNESIUM SULFATE
     Indication: SUPRAVENTRICULAR TACHYCARDIA
     Dosage: (TOTAL DOSE 3600 MG)
     Route: 042
  10. NOVALMINSULFONE [Concomitant]
     Indication: PROCEDURAL PAIN
     Route: 065
  11. ASPRIN [Concomitant]
     Active Substance: ASPIRIN
     Indication: PRODUCT USED FOR UNKNOWN INDICATION
     Dosage: DAILY
     Route: 065
  12. ROCURONIUM [Suspect]
     Active Substance: ROCURONIUM BROMIDE
     Indication: NEUROMUSCULAR BLOCKADE
     Dosage: (0.61 MG PER KG SINGLE DOSE)
     Route: 065
  13. SUPRANE [Suspect]
     Active Substance: DESFLURANE
     Indication: MAINTENANCE OF ANAESTHESIA
     Dosage: 5.8 TO 6.1 VOLUME PERCENT END TIDAL
     Route: 055
  14. SUGAMMADEX [Suspect]
     Active Substance: SUGAMMADEX
     Indication: NEUROMUSCULAR BLOCKADE REVERSAL
     Dosage: (2.1 MILLIGRAM PER KILOGRAM)
     Route: 065

REACTIONS (3)
  - Recurrence of neuromuscular blockade [Recovered/Resolved]
  - Supraventricular tachyarrhythmia [Recovered/Resolved]
  - Hypotension [Unknown]
